FAERS Safety Report 15854405 (Version 2)
Quarter: 2019Q1

REPORT INFORMATION
  Report Type: Spontaneous
  Country: BR (occurrence: BR)
  Receive Date: 20190122
  Receipt Date: 20190129
  Transmission Date: 20190417
  Serious: Yes (Other)
  Sender: FDA-Public Use
  Company Number: BR-PFIZER INC-2019026827

PATIENT
  Age: 8 Decade
  Sex: Female
  Weight: 94 kg

DRUGS (1)
  1. ALDACTONE [Suspect]
     Active Substance: SPIRONOLACTONE
     Indication: DIURETIC THERAPY
     Dosage: 50 MG, 1X/DAY
     Dates: start: 2017, end: 2017

REACTIONS (3)
  - Nausea [Unknown]
  - Dizziness [Unknown]
  - Swelling [Unknown]

NARRATIVE: CASE EVENT DATE: 2017
